FAERS Safety Report 16080702 (Version 1)
Quarter: 2019Q1

REPORT INFORMATION
  Report Type: Spontaneous
  Country: US (occurrence: US)
  Receive Date: 20190316
  Receipt Date: 20190316
  Transmission Date: 20190418
  Serious: Yes (Other)
  Sender: FDA-Public Use
  Company Number: US-JNJFOC-20190242093

PATIENT
  Sex: Female
  Weight: 57 kg

DRUGS (1)
  1. DARZALEX [Suspect]
     Active Substance: DARATUMUMAB
     Indication: PLASMA CELL MYELOMA
     Dosage: 400 MG, 2 VIALS OF 400 MG, PART OF 950 MG AND 200 MG, 2 VIALS OF 100 MG, PART OF 950 MG
     Route: 042
     Dates: end: 201902

REACTIONS (1)
  - Cellulitis [Unknown]
